FAERS Safety Report 5427719-8 (Version None)
Quarter: 2007Q3

REPORT INFORMATION
  Report Type: 
  Country: None (occurrence: None)
  Receive Date: 20070828
  Receipt Date: 20070823
  Transmission Date: 20080115
  Serious: Yes (Death, Hospitalization)
  Sender: FDA-Public Use
  Company Number: HQWYE579716AUG07

PATIENT
  Age: 85 Year
  Sex: Male

DRUGS (2)
  1. TYGACIL [Suspect]
     Indication: SMALL INTESTINAL PERFORATION
     Dosage: 100MG LOADING THEN 50 MG Q12
     Route: 042
  2. TYGACIL [Suspect]
     Indication: ABDOMINAL INFECTION

REACTIONS (4)
  - ALANINE AMINOTRANSFERASE INCREASED [None]
  - ASPARTATE AMINOTRANSFERASE INCREASED [None]
  - BLOOD BILIRUBIN INCREASED [None]
  - DEATH [None]
